FAERS Safety Report 5977116-1 (Version None)
Quarter: 2008Q4

REPORT INFORMATION
  Report Type: 
  Country: None (occurrence: None)
  Receive Date: 20081201
  Receipt Date: 20081201
  Transmission Date: 20090506
  Serious: Yes (Hospitalization)
  Sender: FDA-Public Use
  Company Number: None

PATIENT
  Age: 57 Year
  Sex: Male

DRUGS (2)
  1. CIPROFLOXACIN HCL [Suspect]
     Indication: URINARY TRACT INFECTION
     Dosage: 500 MG ONCE PO
     Route: 048
     Dates: start: 20081120, end: 20081120
  2. DOLASETRON [Suspect]
     Indication: NAUSEA
     Dates: start: 20081120, end: 20081120

REACTIONS (2)
  - AGITATION [None]
  - AKATHISIA [None]
